FAERS Safety Report 4466486-1 (Version None)
Quarter: 2004Q3

REPORT INFORMATION
  Report Type: 
  Country: None (occurrence: None)
  Receive Date: 20040930
  Receipt Date: 20040922
  Transmission Date: 20050211
  Serious: Yes (Other)
  Sender: FDA-Public Use
  Company Number: 200414334BCC

PATIENT
  Sex: Male

DRUGS (1)
  1. ALKA-SELTZER [Suspect]

REACTIONS (2)
  - DEAFNESS [None]
  - TINNITUS [None]
